FAERS Safety Report 18530427 (Version 3)
Quarter: 2021Q1

REPORT INFORMATION
  Report Type: Report from Study
  Country: None (occurrence: IT)
  Receive Date: 20201121
  Receipt Date: 20210201
  Transmission Date: 20210419
  Serious: Yes (Hospitalization)
  Sender: FDA-Public Use
  Company Number: IT-ABBVIE-20K-083-3658264-00

PATIENT
  Age: 67 Year
  Sex: Male

DRUGS (27)
  1. VELCADE [Suspect]
     Active Substance: BORTEZOMIB
     Dosage: C9 +: D1, 8, 15, 16, 22 OF 35 DAY CYCLE (1.86 MG)
     Route: 058
     Dates: start: 20191128, end: 20200611
  2. VELCADE [Suspect]
     Active Substance: BORTEZOMIB
     Dosage: 1?8:D1, 4, 8 + 11 OF 21 DAY CYCLE (1.94 MG)
     Route: 058
     Dates: start: 20170726, end: 20170929
  3. VELCADE [Suspect]
     Active Substance: BORTEZOMIB
     Dosage: C9 +: D1, 8, 15, 16, 22 OF 35 DAY CYCLE (1.93 MG)
     Route: 058
     Dates: start: 20180307, end: 20180621
  4. BACTRIM [Concomitant]
     Active Substance: SULFAMETHOXAZOLE\TRIMETHOPRIM
     Indication: INFECTION PROPHYLAXIS
     Route: 048
     Dates: start: 20190328
  5. VENETOCLAX. [Suspect]
     Active Substance: VENETOCLAX
     Indication: PLASMA CELL MYELOMA
     Route: 048
  6. VELCADE [Suspect]
     Active Substance: BORTEZOMIB
     Indication: PLASMA CELL MYELOMA
     Dosage: C1?8:D1, 4, 8 AND 11 OF 21 DAY CYCLE;C9 +: D1, 8, 15, 16, 22 OF 35 DAY CYCLE (1.99 MG)
     Route: 058
     Dates: start: 20171010, end: 20171110
  7. VELCADE [Suspect]
     Active Substance: BORTEZOMIB
     Dosage: C9 +: D1, 8, 15, 16, 22 OF 35 DAY CYCLE (1.86 MG)
     Route: 058
     Dates: start: 20191128, end: 20200611
  8. VELCADE [Suspect]
     Active Substance: BORTEZOMIB
     Dosage: C9 C9 +: D1, 8, 15, 16, 22 OF 35 DAY CYCLE (1.84 MG)
     Route: 058
     Dates: start: 20200625, end: 20201015
  9. VELCADE [Suspect]
     Active Substance: BORTEZOMIB
     Dosage: C9 +: D1, 8, 15, 16, 22 OF 35 DAY CYCLE (2 MG)
     Route: 058
     Dates: start: 20180628, end: 20191010
  10. DEXAMETHASONE. [Suspect]
     Active Substance: DEXAMETHASONE
     Route: 048
     Dates: start: 20130416, end: 201307
  11. FLECAINIDE [Concomitant]
     Active Substance: FLECAINIDE
     Indication: ATRIAL FIBRILLATION
     Dosage: 100 MG,2 IN 1D
     Route: 048
     Dates: start: 2013
  12. OMEPRAZOLO MYLAN [Concomitant]
     Active Substance: OMEPRAZOLE SODIUM
     Indication: GASTRITIS PROPHYLAXIS
     Route: 048
     Dates: start: 2013
  13. MAGNESIUM [Concomitant]
     Active Substance: MAGNESIUM
     Indication: MINERAL SUPPLEMENTATION
     Route: 048
     Dates: start: 20190813
  14. VELCADE [Suspect]
     Active Substance: BORTEZOMIB
     Dosage: C1?8:D1, 4, 8 AND 11 OF 21 DAY CYCLE
     Route: 058
     Dates: start: 20170606, end: 20170616
  15. VELCADE [Suspect]
     Active Substance: BORTEZOMIB
     Dosage: C9 +: D1, 8, 15, 16, 22 OF 35 DAY CYCLE (1.83 MG)
     Route: 058
     Dates: start: 20180121, end: 20180221
  16. VELCADE [Suspect]
     Active Substance: BORTEZOMIB
     Dosage: C1?8:D1, 4, 8 + 11 OF 21 DAY CYCLE (2.52 MG)
     Route: 058
     Dates: start: 20170627, end: 20170627
  17. VELCADE [Suspect]
     Active Substance: BORTEZOMIB
     Dosage: C9 +: D1, 8, 15, 16, 22 OF 35 DAY CYCLE (2 MG)
     Route: 058
     Dates: start: 20180307, end: 20180607
  18. ATENOLOLO [Concomitant]
     Active Substance: ATENOLOL
     Indication: ATRIAL FIBRILLATION
     Route: 048
  19. BACTRIM [Concomitant]
     Active Substance: SULFAMETHOXAZOLE\TRIMETHOPRIM
     Indication: ANTIBIOTIC PROPHYLAXIS
     Dosage: DOSE: 800+160 MG (2 IN 1 D)?DOSE: 800+160 MG (3 IN 1 WK)
     Route: 048
     Dates: start: 20170606, end: 20190327
  20. DEXAMETHASONE. [Suspect]
     Active Substance: DEXAMETHASONE
     Indication: PLASMA CELL MYELOMA
     Route: 048
     Dates: start: 20200416, end: 20201016
  21. DEXAMETHASONE. [Suspect]
     Active Substance: DEXAMETHASONE
     Route: 048
     Dates: start: 20180621, end: 20200403
  22. AUGMENTIN [Concomitant]
     Active Substance: AMOXICILLIN\CLAVULANATE POTASSIUM
     Indication: ANTIBIOTIC PROPHYLAXIS
     Dosage: 2 GM (1 GM,2 IN 1 D)
     Route: 048
     Dates: start: 20190328
  23. DEXAMETHASONE. [Suspect]
     Active Substance: DEXAMETHASONE
     Route: 048
     Dates: start: 201406, end: 201407
  24. ACICLOVIR [Concomitant]
     Active Substance: ACYCLOVIR
     Indication: HERPES ZOSTER
     Route: 048
     Dates: start: 20170605
  25. LYRICA [Concomitant]
     Active Substance: PREGABALIN
     Indication: NEUROPATHY PERIPHERAL
     Route: 048
     Dates: start: 20200521
  26. VELCADE [Suspect]
     Active Substance: BORTEZOMIB
     Dosage: C9 +: D1, 8, 15, 16, 22 OF 35 DAY CYCLE (1.91 MG)
     Route: 058
     Dates: start: 20191107, end: 20201114
  27. DEXAMETHASONE. [Suspect]
     Active Substance: DEXAMETHASONE
     Route: 048
     Dates: start: 20170606, end: 20180608

REACTIONS (1)
  - COVID-19 pneumonia [Recovered/Resolved]

NARRATIVE: CASE EVENT DATE: 20201008
